FAERS Safety Report 20545640 (Version 1)
Quarter: 2022Q1

REPORT INFORMATION
  Report Type: Spontaneous
  Country: US (occurrence: US)
  Receive Date: 20220303
  Receipt Date: 20220303
  Transmission Date: 20220423
  Serious: No
  Sender: FDA-Public Use
  Company Number: US-TARO-2021TAR01151

PATIENT

DRUGS (1)
  1. MICONAZOLE NITRATE 2% CREAM ANTIFUNGAL [Suspect]
     Active Substance: MICONAZOLE NITRATE
     Indication: Product used for unknown indication
     Dosage: UNK, AS DIRECTED
     Route: 067

REACTIONS (3)
  - Underdose [Unknown]
  - Drug ineffective [Unknown]
  - Product quality issue [Unknown]
